FAERS Safety Report 11492460 (Version 5)
Quarter: 2016Q2

REPORT INFORMATION
  Report Type: Report from Study
  Country: US (occurrence: US)
  Receive Date: 20150910
  Receipt Date: 20160429
  Transmission Date: 20160815
  Serious: Yes (Hospitalization)
  Sender: FDA-Public Use
  Company Number: US-BIOMARINAP-US-2015-107333

PATIENT
  Age: 15 Year
  Sex: Male

DRUGS (1)
  1. ALDURAZYME [Suspect]
     Active Substance: LARONIDASE
     Indication: MUCOPOLYSACCHARIDOSIS I
     Dosage: 26.1 MG, QW
     Route: 041
     Dates: start: 201102

REACTIONS (4)
  - Fall [Not Recovered/Not Resolved]
  - Spinal cord compression [Recovered/Resolved]
  - Anal incontinence [Unknown]
  - Near drowning [Recovering/Resolving]

NARRATIVE: CASE EVENT DATE: 20150830
